FAERS Safety Report 10362862 (Version 1)
Quarter: 2014Q1

REPORT INFORMATION
  Report Type: Spontaneous
  Country: US (occurrence: None)
  Receive Date: 20140306
  Receipt Date: 20140306
  Transmission Date: 20141002
  Serious: Yes (Other)
  Sender: FDA-Public Use
  Company Number: 163-21880-13021948

PATIENT
  Age: 69 Year
  Sex: Male

DRUGS (7)
  1. REVLIMID (LENALIDOMIDE) (10 MILLIGRAM, CAPSULES) [Suspect]
     Indication: PLASMA CELL MYELOMA
     Dosage: 19-MAR-2012 - TEMPORARILY INTERRUPTED?20 MG, 21 IN 21 D, PO
     Route: 048
     Dates: start: 20120319
  2. ACETAMINOPHEN (PARACETAMOL) (UNKNOWN) (PARACETAMOL) [Concomitant]
  3. SPIRIVA (UNKNOWN) [Concomitant]
  4. FINASTERIDE (FINASTERIDE) (UNKNOWN) [Concomitant]
  5. LISINOPRIL (LISINOPRIL) (UNKNOWN) (LISINOPRIL) [Concomitant]
  6. OMEPRAZOLE (OMEPRAZOLE) (UNKNOWN) [Concomitant]
  7. TERAZOSIN (TERAZOSIN) (UNKNOWN) [Concomitant]

REACTIONS (1)
  - Thrombosis [None]
